FAERS Safety Report 7587730-8 (Version None)
Quarter: 2011Q3

REPORT INFORMATION
  Report Type: 
  Country: None (occurrence: None)
  Receive Date: 20110704
  Receipt Date: 20110622
  Transmission Date: 20111222
  Serious: Yes (Hospitalization)
  Sender: FDA-Public Use
  Company Number: US-AMGEN-USASP2011031961

PATIENT
  Age: 52 Year
  Sex: Male

DRUGS (1)
  1. ENBREL [Suspect]
     Indication: PSORIASIS
     Dosage: 50 MG, QWK
     Dates: start: 20050405, end: 20070101

REACTIONS (4)
  - PSORIASIS [None]
  - MYOCARDIAL INFARCTION [None]
  - LOCALISED INFECTION [None]
  - CORONARY ARTERY BYPASS [None]
